FAERS Safety Report 9466280 (Version 1)
Quarter: 2013Q3

REPORT INFORMATION
  Report Type: Spontaneous
  Country: TW (occurrence: TW)
  Receive Date: 20130820
  Receipt Date: 20130820
  Transmission Date: 20140515
  Serious: Yes (Other)
  Sender: FDA-Public Use
  Company Number: PHHY2013TW087302

PATIENT
  Age: 36 Year
  Sex: Male

DRUGS (6)
  1. CLOPIDOGREL [Suspect]
     Indication: ACUTE MYOCARDIAL INFARCTION
     Dosage: 300 MG, UNK
  2. HEPARIN [Suspect]
     Indication: ACUTE MYOCARDIAL INFARCTION
  3. ENOXAPARIN SODIUM [Suspect]
     Indication: ACUTE MYOCARDIAL INFARCTION
  4. ACETYLSALICYLIC ACID [Suspect]
     Indication: ACUTE MYOCARDIAL INFARCTION
     Dosage: 300 MG, UNK
     Route: 048
  5. ABCIXIMAB [Suspect]
     Dosage: 7.5 MG CONTINUOUS INFUSION FOR 12 HOURS
     Route: 042
  6. ABCIXIMAB [Suspect]
     Dosage: 15 MG, UNK

REACTIONS (5)
  - Eye haemorrhage [Recovered/Resolved]
  - Exophthalmos [Recovered/Resolved]
  - Vision blurred [Recovered/Resolved]
  - Ecchymosis [Recovered/Resolved]
  - Diplopia [Recovered/Resolved]
